FAERS Safety Report 16135249 (Version 3)
Quarter: 2021Q2

REPORT INFORMATION
  Report Type: Report from Study
  Country: JP (occurrence: JP)
  Receive Date: 20190329
  Receipt Date: 20210505
  Transmission Date: 20210716
  Serious: Yes (Other)
  Sender: FDA-Public Use
  Company Number: JP-JNJFOC-20190335454

PATIENT
  Age: 57 Year
  Sex: Male

DRUGS (24)
  1. DAIPHEN [Concomitant]
     Active Substance: SULFAMETHOXAZOLE\TRIMETHOPRIM
     Indication: PNEUMOCYSTIS JIROVECII PNEUMONIA
     Dosage: UNKNOWN
     Route: 048
     Dates: start: 20150807, end: 20150827
  2. TIVICAY [Suspect]
     Active Substance: DOLUTEGRAVIR SODIUM
     Indication: HIV INFECTION
     Route: 048
     Dates: start: 20150826, end: 20190401
  3. VALIXA [Concomitant]
     Active Substance: VALGANCICLOVIR
     Indication: CYTOMEGALOVIRUS VIRAEMIA
     Dosage: UNKNOWN
     Route: 048
     Dates: start: 20150826, end: 20150916
  4. DALACIN T [Concomitant]
     Active Substance: CLINDAMYCIN PHOSPHATE
     Dosage: UNKNOWN
     Route: 065
     Dates: start: 20150921
  5. FEXOFENADINE HYDROCHLORIDE. [Concomitant]
     Active Substance: FEXOFENADINE HYDROCHLORIDE
     Dosage: UNKNOWN
     Route: 048
     Dates: start: 20151021, end: 20170429
  6. PEKIRON [Concomitant]
     Indication: TINEA PEDIS
     Dosage: UNKNOWN
     Route: 061
     Dates: start: 20160309
  7. CLENAFIN [Concomitant]
     Active Substance: EFINACONAZOLE
     Indication: TINEA PEDIS
     Dosage: UNKNOWN
     Route: 061
     Dates: start: 20160309
  8. MICARDIS [Concomitant]
     Active Substance: TELMISARTAN
     Indication: HYPERTENSION
     Dosage: UNKNOWN
     Route: 048
     Dates: start: 20161116, end: 20170822
  9. URSODEOXYCHOLIC ACID [Concomitant]
     Active Substance: URSODIOL
     Indication: DRUG-INDUCED LIVER INJURY
     Dosage: UNKNOWN
     Route: 048
     Dates: start: 20150821, end: 20150827
  10. LOXOPROFEN SODIUM [Concomitant]
     Active Substance: LOXOPROFEN SODIUM
     Indication: ARTHRALGIA
     Dosage: UNKNOWN
     Route: 048
     Dates: start: 20151028
  11. DARUNAVIR/COBICISTAT [Suspect]
     Active Substance: COBICISTAT\DARUNAVIR ETHANOLATE
     Indication: HIV INFECTION
     Route: 048
     Dates: start: 20170217
  12. PREDNISOLONE. [Concomitant]
     Active Substance: PREDNISOLONE
     Dosage: UNKNOWN
     Route: 065
     Dates: start: 20150820, end: 20150827
  13. INFREE [Concomitant]
     Active Substance: INDOMETHACIN FARNESIL
     Indication: ARTHRALGIA
     Dosage: UNKNOWN
     Route: 048
     Dates: start: 20150930, end: 20170429
  14. LOXOPROFEN SODIUM HYDRATE [Concomitant]
     Active Substance: LOXOPROFEN SODIUM DIHYDRATE
     Indication: ARTHRALGIA
     Dosage: UNKNOWN
     Route: 062
     Dates: start: 20160613
  15. INTEBAN [Concomitant]
     Active Substance: INDOMETHACIN
     Indication: ARTHRALGIA
     Dosage: UNKNOWN
     Route: 061
     Dates: start: 20150930
  16. RILPIVIRINE HYDROCHLORIDE [Suspect]
     Active Substance: RILPIVIRINE HYDROCHLORIDE
     Indication: HIV INFECTION
     Route: 048
     Dates: start: 20150826, end: 20190401
  17. JULUCA [Concomitant]
     Active Substance: DOLUTEGRAVIR SODIUM\RILPIVIRINE HYDROCHLORIDE
     Indication: HIV INFECTION
     Route: 048
     Dates: start: 20190401
  18. CANCIDAS [Concomitant]
     Active Substance: CASPOFUNGIN ACETATE
     Indication: FUNGAL INFECTION
     Dosage: UNKNOWN
     Route: 065
     Dates: start: 20150904, end: 20150911
  19. RHYTHMY [Concomitant]
     Active Substance: RILMAZAFONE HYDROCHLORIDE
     Indication: INSOMNIA
     Dosage: UNKNOWN
     Route: 048
     Dates: start: 20151028, end: 20151217
  20. NORVIR [Suspect]
     Active Substance: RITONAVIR
     Indication: HIV INFECTION
     Route: 048
     Dates: start: 20150826, end: 20170216
  21. DAIPHEN [Concomitant]
     Active Substance: SULFAMETHOXAZOLE\TRIMETHOPRIM
     Indication: PROPHYLAXIS
     Dosage: UNKNOWN
     Route: 048
     Dates: start: 20150828, end: 20160517
  22. SANCOBA [Concomitant]
     Active Substance: CYANOCOBALAMIN
     Indication: ASTHENOPIA
     Dosage: DOSE UNKNOWN
     Route: 047
     Dates: start: 20180613
  23. PREZISTANAIVE [Suspect]
     Active Substance: DARUNAVIR
     Indication: HIV INFECTION
     Route: 048
     Dates: start: 20150826, end: 20170216
  24. MICAMLO [Concomitant]
     Active Substance: AMLODIPINE BESYLATE\TELMISARTAN
     Indication: HYPERTENSION
     Dosage: UNKNOWN
     Route: 048
     Dates: start: 20170823

REACTIONS (9)
  - Hyperuricaemia [Recovering/Resolving]
  - Dyslipidaemia [Recovering/Resolving]
  - Asthenopia [Not Recovered/Not Resolved]
  - Folliculitis [Recovering/Resolving]
  - Hypertension [Not Recovered/Not Resolved]
  - Fungal infection [Recovering/Resolving]
  - Pain in extremity [Not Recovered/Not Resolved]
  - Arthralgia [Recovering/Resolving]
  - Tinea pedis [Recovering/Resolving]

NARRATIVE: CASE EVENT DATE: 20150904
